FAERS Safety Report 15300742 (Version 2)
Quarter: 2018Q3

REPORT INFORMATION
  Report Type: Spontaneous
  Country: JP (occurrence: JP)
  Receive Date: 20180821
  Receipt Date: 20180921
  Transmission Date: 20181010
  Serious: Yes (Death, Hospitalization)
  Sender: FDA-Public Use
  Company Number: JP-JNJFOC-20180824207

PATIENT
  Age: 80 Year
  Sex: Male

DRUGS (17)
  1. LEVODOPA/CARBIDOPA [Concomitant]
     Active Substance: CARBIDOPA\LEVODOPA
     Route: 048
     Dates: start: 2015, end: 2016
  2. LEVODOPA/CARBIDOPA [Concomitant]
     Active Substance: CARBIDOPA\LEVODOPA
     Route: 048
     Dates: start: 200802, end: 2010
  3. LEVODOPA/CARBIDOPA [Concomitant]
     Active Substance: CARBIDOPA\LEVODOPA
     Route: 048
     Dates: start: 2012, end: 2013
  4. LEVODOPA/CARBIDOPA [Concomitant]
     Active Substance: CARBIDOPA\LEVODOPA
     Route: 048
     Dates: start: 2013, end: 2014
  5. LEVODOPA/CARBIDOPA [Concomitant]
     Active Substance: CARBIDOPA\LEVODOPA
     Route: 048
     Dates: start: 2014, end: 2015
  6. PERGOLIDE [Concomitant]
     Active Substance: PERGOLIDE
     Route: 048
     Dates: start: 2014
  7. QUETIAPINE. [Concomitant]
     Active Substance: QUETIAPINE
     Route: 048
     Dates: start: 2013
  8. LEVODOPA/CARBIDOPA [Concomitant]
     Active Substance: CARBIDOPA\LEVODOPA
     Route: 048
     Dates: start: 2016
  9. ROPINIROLE. [Concomitant]
     Active Substance: ROPINIROLE
     Route: 048
     Dates: start: 2014
  10. REMINYL [Suspect]
     Active Substance: GALANTAMINE
     Indication: DEMENTIA ALZHEIMER^S TYPE
     Route: 048
     Dates: start: 2013, end: 201712
  11. ROPINIROLE. [Concomitant]
     Active Substance: ROPINIROLE
     Route: 048
     Dates: start: 2014, end: 2014
  12. LEVODOPA/CARBIDOPA [Concomitant]
     Active Substance: CARBIDOPA\LEVODOPA
     Route: 048
     Dates: start: 2010, end: 2012
  13. PERGOLIDE [Concomitant]
     Active Substance: PERGOLIDE
     Route: 048
     Dates: start: 2012, end: 2014
  14. ROPINIROLE. [Concomitant]
     Active Substance: ROPINIROLE
     Route: 048
     Dates: start: 200802, end: 2009
  15. ROTIGOTINE [Concomitant]
     Active Substance: ROTIGOTINE
     Route: 065
     Dates: start: 2014, end: 2016
  16. ROTIGOTINE [Concomitant]
     Active Substance: ROTIGOTINE
     Route: 065
     Dates: start: 2016
  17. APOMORPHINE HYDROCHLORIDE [Concomitant]
     Active Substance: APOMORPHINE HYDROCHLORIDE
     Route: 065
     Dates: start: 2016

REACTIONS (10)
  - Illusion [Unknown]
  - Fall [Unknown]
  - Pneumonia aspiration [Fatal]
  - Incontinence [Unknown]
  - Gastric ulcer haemorrhage [Unknown]
  - Anaemia [Unknown]
  - Orthostatic hypotension [Unknown]
  - Mobility decreased [Unknown]
  - Dyskinesia [Unknown]
  - Hallucination, visual [Unknown]

NARRATIVE: CASE EVENT DATE: 2013
